FAERS Safety Report 12725130 (Version 1)
Quarter: 2016Q3

REPORT INFORMATION
  Report Type: Spontaneous
  Country: US (occurrence: US)
  Receive Date: 20160907
  Receipt Date: 20160907
  Transmission Date: 20161109
  Serious: Yes (Other)
  Sender: FDA-Public Use
  Company Number: None

PATIENT
  Age: 58 Year
  Sex: Female
  Weight: 99.9 kg

DRUGS (3)
  1. ALLOPURINOL. [Suspect]
     Active Substance: ALLOPURINOL
     Indication: BLOOD URIC ACID INCREASED
     Route: 048
     Dates: start: 20160806, end: 20160831
  2. RESTASIS [Concomitant]
     Active Substance: CYCLOSPORINE
  3. EVOXEC [Concomitant]

REACTIONS (4)
  - Burning sensation [None]
  - Pain in extremity [None]
  - Joint stiffness [None]
  - Musculoskeletal stiffness [None]

NARRATIVE: CASE EVENT DATE: 20160831
